FAERS Safety Report 10536620 (Version 1)
Quarter: 2014Q4

REPORT INFORMATION
  Report Type: Spontaneous
  Country: US (occurrence: US)
  Receive Date: 20141022
  Receipt Date: 20141022
  Transmission Date: 20150529
  Serious: Yes (Other)
  Sender: FDA-Public Use
  Company Number: US-RECKITT BENCKISER PHARMACEUTICAL, INC-RB-68599-2014

PATIENT

DRUGS (3)
  1. GRANISETRON [Suspect]
     Active Substance: GRANISETRON
     Indication: ADJUVANT THERAPY
     Dosage: RECEIVED 1 MG/ML ONCE, 30 MINUTES PRIOR TO SUBOXONE
     Route: 042
     Dates: start: 20140325, end: 20140325
  2. NALTREXONE HYDROCHLORIDE. [Suspect]
     Active Substance: NALTREXONE HYDROCHLORIDE
     Indication: ADJUVANT THERAPY
     Dosage: RECEIVED 50 MG AT 12 HOURS AND 1 HOUR PRIOR TO SUBOXONE
     Route: 048
     Dates: start: 20140325, end: 20140325
  3. SUBOXONE [Suspect]
     Active Substance: BUPRENORPHINE HYDROCHLORIDE\NALOXONE HYDROCHLORIDE
     Indication: DRUG LEVEL
     Dosage: SUBOXONE FILM
     Route: 060
     Dates: start: 20140325, end: 20140325

REACTIONS (2)
  - Bradycardia [Recovered/Resolved]
  - Mental status changes [Recovering/Resolving]

NARRATIVE: CASE EVENT DATE: 20140325
